FAERS Safety Report 5832228-8 (Version None)
Quarter: 2008Q3

REPORT INFORMATION
  Report Type: 
  Country: None (occurrence: None)
  Receive Date: 20080804
  Receipt Date: 20080729
  Transmission Date: 20090109
  Serious: Yes (Other)
  Sender: FDA-Public Use
  Company Number: GB-BRISTOL-MYERS SQUIBB COMPANY-14286249

PATIENT
  Age: 80 Year

DRUGS (1)
  1. HYDREA [Suspect]

REACTIONS (1)
  - SQUAMOUS CELL CARCINOMA [None]
